FAERS Safety Report 5221630-3 (Version None)
Quarter: 2007Q1

REPORT INFORMATION
  Report Type: 
  Country: None (occurrence: None)
  Receive Date: 20070126
  Receipt Date: 20070126
  Transmission Date: 20070707
  Serious: Yes (Other)
  Sender: FDA-Public Use
  Company Number: None

PATIENT
  Age: 44 Year
  Sex: Female
  Weight: 79.8331 kg

DRUGS (4)
  1. LYRICA [Suspect]
     Indication: INTERVERTEBRAL DISC DISORDER
     Dosage: 75MG 2XDAY PO
     Route: 048
     Dates: start: 20060124, end: 20060224
  2. LYRICA [Suspect]
     Indication: NEURALGIA
     Dosage: 75MG 2XDAY PO
     Route: 048
     Dates: start: 20060124, end: 20060224
  3. LYRICA [Suspect]
     Indication: INTERVERTEBRAL DISC DISORDER
     Dosage: 75MG 2XDAY PO
     Route: 048
     Dates: start: 20060224, end: 20061231
  4. LYRICA [Suspect]
     Indication: NEURALGIA
     Dosage: 75MG 2XDAY PO
     Route: 048
     Dates: start: 20060224, end: 20061231

REACTIONS (7)
  - ASTHENIA [None]
  - BACK INJURY [None]
  - HYPERPHAGIA [None]
  - INCREASED APPETITE [None]
  - MUSCULOSKELETAL PAIN [None]
  - SCAR [None]
  - WEIGHT INCREASED [None]
